FAERS Safety Report 24306841 (Version 1)
Quarter: 2024Q3

REPORT INFORMATION
  Report Type: Spontaneous
  Country: US (occurrence: None)
  Receive Date: 20240910
  Receipt Date: 20240910
  Transmission Date: 20241017
  Serious: No
  Sender: Public
  Company Number: None

PATIENT
  Sex: Female
  Weight: 94.5 kg

DRUGS (10)
  1. AIMOVIG [Suspect]
     Active Substance: ERENUMAB-AOOE
     Indication: Migraine
     Dosage: OTHER FREQUENCY : ONCE PER MONTH;?
     Route: 058
     Dates: start: 20231216, end: 20240801
  2. Metoprolol Succ Er 50 Mg Tab [Concomitant]
  3. Lisdexamfetamine 40 Mg Capsule [Concomitant]
  4. RIZATRIPTAN [Concomitant]
     Active Substance: RIZATRIPTAN
  5. Magnesium glycinate 240mg, [Concomitant]
  6. CoQ10 100mg, [Concomitant]
  7. D3 5000 IU [Concomitant]
  8. famotidine tablet 10mg [Concomitant]
  9. loratadine 10mg [Concomitant]
  10. Excedrine migraine(acetaminophen 500mg, aspirin 500mg, caffeine 130mg) [Concomitant]

REACTIONS (4)
  - Alopecia [None]
  - Loss of libido [None]
  - Orgasm abnormal [None]
  - Inadequate lubrication [None]
